FAERS Safety Report 23442873 (Version 1)
Quarter: 2024Q1

REPORT INFORMATION
  Report Type: Other
  Country: SK (occurrence: SK)
  Receive Date: 20240125
  Receipt Date: 20240125
  Transmission Date: 20240410
  Serious: Yes (Life-Threatening, Hospitalization, Other)
  Sender: FDA-Public Use
  Company Number: SK-Merck Healthcare KGaA-2024002825

PATIENT
  Age: 38 Year
  Sex: Female

DRUGS (1)
  1. METFORMIN [Suspect]
     Active Substance: METFORMIN HYDROCHLORIDE
     Indication: Suicidal ideation
     Dosage: APPROXIMATELY 40 METFORMIN TABLETS

REACTIONS (25)
  - Toxicity to various agents [Unknown]
  - Renal failure [Recovered/Resolved]
  - Azotaemia [Recovering/Resolving]
  - Sinus bradycardia [Unknown]
  - Hypotension [Unknown]
  - Respiratory failure [Unknown]
  - Shock [Unknown]
  - Pleural effusion [Unknown]
  - Suicide attempt [Unknown]
  - Lactic acidosis [Recovered/Resolved]
  - Hypoglycaemia [Recovered/Resolved]
  - Psychomotor hyperactivity [Unknown]
  - Ventricular extrasystoles [Unknown]
  - Altered state of consciousness [Unknown]
  - Thrombocytopenia [Recovered/Resolved]
  - Hypocoagulable state [Recovered/Resolved]
  - Normocytic anaemia [Unknown]
  - Pancreatitis acute [Unknown]
  - Lipase increased [Recovered/Resolved]
  - Hyperamylasaemia [Recovered/Resolved]
  - Intentional overdose [Unknown]
  - Hypoacusis [Unknown]
  - Hyperglycaemia [Recovered/Resolved]
  - Blood alcohol increased [Unknown]
  - Hepatic function abnormal [Recovered/Resolved]
